FAERS Safety Report 9343682 (Version 3)
Quarter: 2013Q3

REPORT INFORMATION
  Report Type: Report from Study
  Country: US (occurrence: US)
  Receive Date: 20130612
  Receipt Date: 20130919
  Transmission Date: 20140515
  Serious: No
  Sender: FDA-Public Use
  Company Number: PHEH2012US023584

PATIENT
  Sex: Female
  Weight: 90.7 kg

DRUGS (7)
  1. TASIGNA [Suspect]
     Indication: CHRONIC MYELOID LEUKAEMIA
     Dosage: 300 MG, BID
     Route: 048
     Dates: start: 20121119
  2. TASIGNA [Suspect]
     Dosage: 150 MG, DAILY
     Route: 048
  3. TASIGNA [Suspect]
     Dosage: 300 MG, QD
     Route: 048
     Dates: start: 20121126
  4. SPRYCEL [Suspect]
     Dosage: 100 MG, QD
     Dates: start: 2006, end: 2012
  5. TOPAMAX [Concomitant]
     Dosage: UNK
  6. VANCOMYCIN [Concomitant]
  7. ZOFRAN [Concomitant]
     Dosage: UNK

REACTIONS (16)
  - Insomnia [Unknown]
  - Headache [Unknown]
  - Eye swelling [Unknown]
  - Nausea [Unknown]
  - Pruritus [Unknown]
  - Rash [Unknown]
  - Constipation [Unknown]
  - Dyspepsia [Unknown]
  - Photophobia [Unknown]
  - Cough [Unknown]
  - Back pain [Unknown]
  - Weight increased [Unknown]
  - Blood pressure increased [Unknown]
  - Oedema peripheral [Unknown]
  - Urticaria [Unknown]
  - Dysphagia [Unknown]
